FAERS Safety Report 10582600 (Version 3)
Quarter: 2015Q2

REPORT INFORMATION
  Report Type: Report from Study
  Country: US (occurrence: US)
  Receive Date: 20141113
  Receipt Date: 20150604
  Transmission Date: 20150821
  Serious: Yes (Hospitalization)
  Sender: FDA-Public Use
  Company Number: US-GILEAD-2014-0122366

PATIENT
  Age: 68 Year
  Sex: Female

DRUGS (5)
  1. COUMADIN [Concomitant]
     Active Substance: WARFARIN SODIUM
  2. REVATIO [Concomitant]
     Active Substance: SILDENAFIL CITRATE
  3. AMBRISENTAN [Suspect]
     Active Substance: AMBRISENTAN
     Indication: PULMONARY HYPERTENSION
     Dosage: 10 MG, QD
     Route: 065
     Dates: start: 20091105
  4. AMBRISENTAN [Suspect]
     Active Substance: AMBRISENTAN
     Indication: EMBOLISM
  5. VENTAVIS [Concomitant]
     Active Substance: ILOPROST

REACTIONS (2)
  - Oxygen saturation abnormal [Unknown]
  - Dyspnoea [Unknown]
